FAERS Safety Report 5389257-0 (Version None)
Quarter: 2007Q3

REPORT INFORMATION
  Report Type: 
  Country: None (occurrence: None)
  Receive Date: 20070717
  Receipt Date: 20070713
  Transmission Date: 20080115
  Serious: Yes (Other)
  Sender: FDA-Public Use
  Company Number: B0479003A

PATIENT
  Age: 17 Year
  Sex: Male

DRUGS (4)
  1. PAXIL [Suspect]
     Indication: DEPRESSION
     Dosage: 20MG PER DAY
     Route: 048
     Dates: start: 20061104, end: 20061216
  2. CARBAMAZEPINE [Concomitant]
     Dates: start: 20061216
  3. FLUVOXAMINE MALEATE [Concomitant]
     Dates: start: 20070214
  4. AMOXAPINE [Concomitant]
     Dosage: 40MG PER DAY
     Dates: start: 20070612, end: 20070616

REACTIONS (2)
  - AGGRESSION [None]
  - HOMICIDAL IDEATION [None]
